FAERS Safety Report 7727791-6 (Version None)
Quarter: 2011Q3

REPORT INFORMATION
  Report Type: 
  Country: None (occurrence: None)
  Receive Date: 20110905
  Receipt Date: 20110829
  Transmission Date: 20111222
  Serious: Yes (Hospitalization, Other)
  Sender: FDA-Public Use
  Company Number: US-BRISTOL-MYERS SQUIBB COMPANY-16013617

PATIENT
  Age: 48 Year
  Sex: Male
  Weight: 134 kg

DRUGS (7)
  1. NORVASC [Concomitant]
     Indication: HYPERTENSION
     Dates: start: 20110502
  2. GLIPIZIDE [Concomitant]
     Indication: TYPE 2 DIABETES MELLITUS
     Dates: start: 20110304
  3. ONDANSETRON [Concomitant]
     Indication: NAUSEA
     Dates: start: 20110521
  4. HYDROXYCHLOROQUINE [Concomitant]
     Indication: MALIGNANT ANORECTAL NEOPLASM
     Route: 048
     Dates: start: 20110509, end: 20110728
  5. METFORMIN HCL [Suspect]
     Indication: TYPE 2 DIABETES MELLITUS
     Route: 048
     Dates: start: 20100901, end: 20110728
  6. TEMSIROLIMUS [Concomitant]
     Indication: MALIGNANT ANORECTAL NEOPLASM
     Dosage: CONCENTRATE FOR SOLUTION FOR INF 02MAY-16MAY11,25MG 06JUN-26JUL11,20MG
     Route: 042
     Dates: start: 20110502
  7. OXYCODONE HCL [Concomitant]
     Indication: PAIN
     Dates: start: 20110613

REACTIONS (2)
  - SMALL INTESTINAL OBSTRUCTION [None]
  - ACIDOSIS [None]
